FAERS Safety Report 7230731-X (Version None)
Quarter: 2011Q1

REPORT INFORMATION
  Report Type: 
  Country: None (occurrence: None)
  Receive Date: 20110118
  Receipt Date: 20110105
  Transmission Date: 20110831
  Serious: Yes (Hospitalization, Other)
  Sender: FDA-Public Use
  Company Number: US-ELI_LILLY_AND_COMPANY-US201101001824

PATIENT
  Sex: Female

DRUGS (8)
  1. HYDROCODONE [Concomitant]
     Dosage: UNK, AS NEEDED
  2. FORTEO [Suspect]
     Indication: OSTEOPOROSIS
     Dosage: 20 UG, DAILY (1/D)
  3. LEVETIRACETAM [Concomitant]
     Dosage: 250 MG, 2/D
     Dates: start: 20101203
  4. NEURONTIN [Concomitant]
     Dosage: 300 MG, 3/D
  5. VERAPAMIL [Concomitant]
     Dosage: 240 MG, DAILY (1/D)
  6. PRAMIPEXOLE [Concomitant]
     Dosage: 1 MG, 3/D
  7. OMEPRAZOLE [Concomitant]
     Dosage: 20 MG, DAILY (1/D)
  8. LIPITOR [Concomitant]
     Dosage: 40 MG, EACH EVENING

REACTIONS (9)
  - CEREBROVASCULAR ACCIDENT [None]
  - NERVOUS SYSTEM DISORDER [None]
  - MUSCULOSKELETAL DISORDER [None]
  - THROMBOSIS [None]
  - MEMORY IMPAIRMENT [None]
  - COORDINATION ABNORMAL [None]
  - VISUAL ACUITY REDUCED [None]
  - SPEECH DISORDER [None]
  - FATIGUE [None]
